FAERS Safety Report 20624872 (Version 1)
Quarter: 2022Q1

REPORT INFORMATION
  Report Type: Spontaneous
  Country: US (occurrence: US)
  Receive Date: 20220323
  Receipt Date: 20220323
  Transmission Date: 20220423
  Serious: Yes (Other)
  Sender: FDA-Public Use
  Company Number: US-HELLOPRODUCTS-20220300512

PATIENT

DRUGS (1)
  1. HELLO DRAGON DAZZLE FLUORIDE [Suspect]
     Active Substance: SODIUM FLUORIDE
     Dosage: UNKNOWN DOSE, USED ON AND OFF, 7 OR 8 TIMES
     Dates: start: 2022, end: 2022

REACTIONS (12)
  - Bronchitis [Unknown]
  - Productive cough [Unknown]
  - Sputum discoloured [Unknown]
  - Cough [Unknown]
  - Oropharyngeal pain [Unknown]
  - Productive cough [Unknown]
  - Body temperature increased [Recovered/Resolved]
  - Feeling abnormal [Unknown]
  - Pharyngeal erythema [Unknown]
  - Haemoptysis [Unknown]
  - Staphylococcal infection [Unknown]
  - Bacterial infection [Unknown]

NARRATIVE: CASE EVENT DATE: 20220101
